FAERS Safety Report 8322622-8 (Version None)
Quarter: 2012Q2

REPORT INFORMATION
  Report Type: 
  Country: None (occurrence: None)
  Receive Date: 20120426
  Receipt Date: 20120410
  Transmission Date: 20120825
  Serious: Yes (Death)
  Sender: FDA-Public Use
  Company Number: JPI-P-019237

PATIENT
  Age: 43 Year
  Sex: Female

DRUGS (5)
  1. XYREM [Suspect]
     Indication: CATAPLEXY
     Dosage: SEE IMAGE
     Route: 048
     Dates: end: 20110101
  2. XYREM [Suspect]
     Indication: CATAPLEXY
     Dosage: SEE IMAGE
     Route: 048
     Dates: start: 20080101, end: 20080101
  3. XYREM [Suspect]
     Indication: CATAPLEXY
     Dosage: SEE IMAGE
     Route: 048
     Dates: start: 20081002
  4. XYREM [Suspect]
     Indication: CATAPLEXY
     Dosage: SEE IMAGE
     Route: 048
     Dates: start: 20110101, end: 20120101
  5. XYREM [Suspect]
     Indication: CATAPLEXY
     Dosage: SEE IMAGE
     Route: 048
     Dates: start: 20081009

REACTIONS (7)
  - TOXICITY TO VARIOUS AGENTS [None]
  - FALL [None]
  - PAIN IN EXTREMITY [None]
  - PNEUMONIA [None]
  - INCISION SITE INFECTION [None]
  - COMPLETED SUICIDE [None]
  - SOMNAMBULISM [None]
